FAERS Safety Report 6516279-6 (Version None)
Quarter: 2009Q4

REPORT INFORMATION
  Report Type: 
  Country: None (occurrence: None)
  Receive Date: 20091223
  Receipt Date: 20091214
  Transmission Date: 20100525
  Serious: Yes (Other)
  Sender: FDA-Public Use
  Company Number: US-ABBOTT-09P-163-0614300-00

PATIENT
  Sex: Female
  Weight: 72.64 kg

DRUGS (2)
  1. DEPAKOTE [Suspect]
     Indication: BIPOLAR II DISORDER
     Dates: start: 19970101, end: 20090401
  2. LOREPAM [Concomitant]
     Indication: DRUG USE FOR UNKNOWN INDICATION

REACTIONS (8)
  - HEPATIC ATROPHY [None]
  - HEPATIC ENZYME INCREASED [None]
  - HEPATIC FAILURE [None]
  - HEPATIC FIBROSIS [None]
  - HEPATIC STEATOSIS [None]
  - NAUSEA [None]
  - VOMITING [None]
  - WEIGHT INCREASED [None]
